FAERS Safety Report 4350118-7 (Version None)
Quarter: 2004Q2

REPORT INFORMATION
  Report Type: 
  Country: None (occurrence: None)
  Receive Date: 20040429
  Receipt Date: 20040122
  Transmission Date: 20050107
  Serious: Yes (Death, Life-Threatening)
  Sender: FDA-Public Use
  Company Number: DE-ROCHE-357109

PATIENT
  Age: 56 Year
  Sex: Female

DRUGS (6)
  1. PEGASYS [Suspect]
     Dosage: TAKEN WEEKLY
     Route: 058
     Dates: start: 20030115, end: 20031115
  2. REBETOL [Suspect]
     Route: 048
     Dates: start: 20030115, end: 20031115
  3. ACETAMINOPHEN [Concomitant]
     Route: 048
     Dates: start: 20030115, end: 20031115
  4. ZOLPIDEM [Concomitant]
     Route: 048
  5. BISOPROLOL [Concomitant]
     Dosage: TAKEN IN THE MORNING.
     Route: 048
     Dates: start: 20030715
  6. PANTOZOL [Concomitant]
     Dosage: TAKEN AT NIGHT.

REACTIONS (26)
  - ABDOMINAL PAIN UPPER [None]
  - ACTIVATED PARTIAL THROMBOPLASTIN TIME PROLONGED [None]
  - ANAEMIA [None]
  - AORTIC DISSECTION [None]
  - COAGULOPATHY [None]
  - DYSPEPSIA [None]
  - FALL [None]
  - FLANK PAIN [None]
  - FLATULENCE [None]
  - HAEMATOMA [None]
  - HAEMOGLOBIN DECREASED [None]
  - HAEMORRHAGE [None]
  - HEART RATE INCREASED [None]
  - HEPATOMEGALY [None]
  - JOINT INJURY [None]
  - MULTI-ORGAN FAILURE [None]
  - NAUSEA [None]
  - OEDEMA PERIPHERAL [None]
  - PAIN IN EXTREMITY [None]
  - PERICARDIAL EFFUSION [None]
  - PLATELET DISORDER [None]
  - PLEURAL EFFUSION [None]
  - PROTHROMBIN TIME PROLONGED [None]
  - SHOCK HAEMORRHAGIC [None]
  - SINUS TACHYCARDIA [None]
  - VOMITING [None]
